FAERS Safety Report 8532299-4 (Version None)
Quarter: 2012Q3

REPORT INFORMATION
  Report Type: 
  Country: None (occurrence: None)
  Receive Date: 20120724
  Receipt Date: 20120713
  Transmission Date: 20120928
  Serious: Yes (Other)
  Sender: FDA-Public Use
  Company Number: CN-009507513-1206USA02345

PATIENT

DRUGS (7)
  1. ACARBOSE [Concomitant]
  2. METOPROLOL SUCCINATE [Concomitant]
  3. LEVOTIROXINA S.O [Concomitant]
  4. INSULIN [Concomitant]
  5. ZOCOR [Suspect]
     Indication: HYPERCHOLESTEROLAEMIA
     Dosage: 40 MG, QD
     Route: 048
     Dates: end: 20120101
  6. ZOCOR [Suspect]
     Indication: CORONARY ARTERY DISEASE
  7. ASPIRIN [Concomitant]

REACTIONS (6)
  - ALANINE AMINOTRANSFERASE INCREASED [None]
  - BLOOD CREATININE ABNORMAL [None]
  - BLOOD CREATINE PHOSPHOKINASE INCREASED [None]
  - ASPARTATE AMINOTRANSFERASE INCREASED [None]
  - DRUG-INDUCED LIVER INJURY [None]
  - MYOPATHY [None]
